FAERS Safety Report 7577849-X (Version None)
Quarter: 2011Q2

REPORT INFORMATION
  Report Type: 
  Country: None (occurrence: None)
  Receive Date: 20110628
  Receipt Date: 20110616
  Transmission Date: 20111010
  Serious: Yes (Other)
  Sender: FDA-Public Use
  Company Number: PHFR2011GB03377

PATIENT
  Sex: Female
  Weight: 180 kg

DRUGS (4)
  1. VENLAFAXINE HYDROCHLORIDE [Concomitant]
     Indication: DEPRESSION
     Dosage: 150 MG DAILY
     Route: 048
     Dates: start: 20100901
  2. TOPIRAMATE [Concomitant]
     Indication: AGGRESSION
     Dosage: 150 MG DAILY
     Route: 048
     Dates: start: 20110101
  3. CLOZAPINE [Suspect]
     Indication: SCHIZOPHRENIA
     Dosage: 250 MG, QD
     Route: 048
     Dates: start: 20110414
  4. HALOPERIDOL [Concomitant]
     Dosage: 5 MG DAILY
     Route: 048
     Dates: start: 20100601

REACTIONS (4)
  - FACIAL PAIN [None]
  - SALIVARY HYPERSECRETION [None]
  - EYE MOVEMENT DISORDER [None]
  - SEDATION [None]
